FAERS Safety Report 7801303-0 (Version None)
Quarter: 2011Q4

REPORT INFORMATION
  Report Type: 
  Country: None (occurrence: None)
  Receive Date: 20111006
  Receipt Date: 20111006
  Transmission Date: 20120403
  Serious: Yes (Hospitalization)
  Sender: FDA-Public Use
  Company Number: None

PATIENT
  Age: 57 Year
  Sex: Male
  Weight: 76.4 kg

DRUGS (7)
  1. PHENYTOIN [Suspect]
     Indication: CONVULSION
     Dosage: 300MG QHS PO  CHRONIC
     Route: 048
  2. PHENYTOIN [Suspect]
     Indication: CONVULSION
     Dosage: 200MG QAM PO  CHRONIC
     Route: 048
  3. VISTARIL [Concomitant]
  4. COLACE [Concomitant]
  5. ZYPREXA [Concomitant]
  6. GEODON [Concomitant]
  7. HALDOL [Concomitant]

REACTIONS (3)
  - HYPONATRAEMIA [None]
  - TOXICITY TO VARIOUS AGENTS [None]
  - IMPULSE-CONTROL DISORDER [None]
